FAERS Safety Report 17170106 (Version 1)
Quarter: 2019Q4

REPORT INFORMATION
  Report Type: Spontaneous
  Country: BE (occurrence: BE)
  Receive Date: 20191218
  Receipt Date: 20191218
  Transmission Date: 20200122
  Serious: Yes (Hospitalization, Other)
  Sender: FDA-Public Use
  Company Number: NVSC2019BE066622

PATIENT
  Age: 70 Year
  Sex: Female
  Weight: 77.9 kg

DRUGS (9)
  1. BEVACIZUMAB. [Suspect]
     Active Substance: BEVACIZUMAB
     Indication: OVARIAN CANCER
     Dosage: 15 MG/KG, TIW
     Route: 042
     Dates: start: 20160913
  2. PERINDOPRIL [Concomitant]
     Active Substance: PERINDOPRIL
     Indication: BLOOD PRESSURE ABNORMAL
     Dosage: 5 MG, QD
     Route: 048
     Dates: start: 20161005
  3. CARBOPLATIN. [Suspect]
     Active Substance: CARBOPLATIN
     Dosage: 720.95 MG, TIW
     Route: 042
     Dates: start: 20160913, end: 20160913
  4. PACLITAXEL. [Suspect]
     Active Substance: PACLITAXEL
     Indication: OVARIAN CANCER
     Dosage: 1 UNK, TIW
     Route: 042
     Dates: start: 20160913, end: 20160913
  5. PANTOMED [Concomitant]
     Indication: PRODUCT USED FOR UNKNOWN INDICATION
     Dosage: 40 MG, QD
     Route: 048
  6. ZANIDIP [Concomitant]
     Active Substance: LERCANIDIPINE HYDROCHLORIDE
     Indication: BLOOD PRESSURE ABNORMAL
     Dosage: 5 MG, QD
     Route: 048
  7. CARBOPLATIN. [Suspect]
     Active Substance: CARBOPLATIN
     Indication: OVARIAN CANCER
     Dosage: 720.95 MG, TIW
     Route: 042
     Dates: start: 20160426, end: 20160913
  8. PACLITAXEL. [Suspect]
     Active Substance: PACLITAXEL
     Dosage: 311.5 MG, TIW
     Route: 042
     Dates: start: 20190426
  9. NOBITEN [Concomitant]
     Active Substance: NEBIVOLOL
     Indication: BLOOD PRESSURE ABNORMAL
     Dosage: 5 MG, QD
     Route: 048
     Dates: start: 20161005

REACTIONS (2)
  - Hypertension [Not Recovered/Not Resolved]
  - Infected lymphocele [Recovered/Resolved]

NARRATIVE: CASE EVENT DATE: 20160913
